FAERS Safety Report 17907568 (Version 1)
Quarter: 2020Q2

REPORT INFORMATION
  Report Type: Spontaneous
  Country: US (occurrence: US)
  Receive Date: 20200617
  Receipt Date: 20200617
  Transmission Date: 20200714
  Serious: Yes (Other)
  Sender: FDA-Public Use
  Company Number: None

PATIENT
  Age: 50 Year
  Sex: Female
  Weight: 66.15 kg

DRUGS (1)
  1. FINACEA [Suspect]
     Active Substance: AZELAIC ACID
     Indication: ROSACEA
     Dosage: QUANTITY:50 GRAMS;?
     Route: 061
     Dates: start: 20180627, end: 20180628

REACTIONS (6)
  - Nasal congestion [None]
  - Malaise [None]
  - Swelling face [None]
  - Rhinalgia [None]
  - Pustule [None]
  - Lymphadenopathy [None]

NARRATIVE: CASE EVENT DATE: 20180629
